FAERS Safety Report 8605269-5 (Version None)
Quarter: 2012Q3

REPORT INFORMATION
  Report Type: 
  Country: None (occurrence: None)
  Receive Date: 20120820
  Receipt Date: 20120813
  Transmission Date: 20120928
  Serious: Yes (Other)
  Sender: FDA-Public Use
  Company Number: US-GENZYME-CERZ-1002598

PATIENT
  Sex: Male
  Weight: 73.4 kg

DRUGS (2)
  1. CEREZYME [Suspect]
     Indication: GAUCHER'S DISEASE
     Dosage: 0.82 U/KG, Q2W
     Route: 042
     Dates: start: 20120420, end: 20120601
  2. RITUXIMAB [Concomitant]
     Indication: LYMPHOMA
     Dosage: UNK
     Route: 065
     Dates: start: 20120608, end: 20120711

REACTIONS (1)
  - HERNIA [None]
